FAERS Safety Report 15810095 (Version 1)
Quarter: 2019Q1

REPORT INFORMATION
  Report Type: Spontaneous
  Country: US (occurrence: US)
  Receive Date: 20190111
  Receipt Date: 20190111
  Transmission Date: 20190417
  Serious: No
  Sender: FDA-Public Use
  Company Number: US-ROCHE-2142796

PATIENT
  Age: 47 Year
  Sex: Female
  Weight: 61.29 kg

DRUGS (6)
  1. BENADRYL [Concomitant]
     Active Substance: DIPHENHYDRAMINE HYDROCHLORIDE
     Indication: PREMEDICATION
  2. SOLU-MEDROL [Concomitant]
     Active Substance: METHYLPREDNISOLONE SODIUM SUCCINATE
     Indication: PREMEDICATION
     Dosage: UNKNOWN
     Route: 042
  3. COPAXONE [Concomitant]
     Active Substance: GLATIRAMER ACETATE
     Indication: MULTIPLE SCLEROSIS
     Dosage: UNKNOWN
     Route: 065
  4. RITUXAN [Suspect]
     Active Substance: RITUXIMAB
     Indication: SJOGREN^S SYNDROME
     Dosage: PATIENT RECEIVED SPLIT DOSE ON 03/22/17 + 03/23/17;ONGOING: YES
     Route: 042
     Dates: start: 20170322
  5. PEPCID (UNITED STATES) [Concomitant]
     Indication: PREMEDICATION
  6. TYLENOL #1 (UNITED STATES) [Concomitant]
     Indication: PREMEDICATION

REACTIONS (4)
  - Depressed mood [Unknown]
  - Intentional product use issue [Unknown]
  - Off label use [Unknown]
  - Urticaria [Unknown]

NARRATIVE: CASE EVENT DATE: 20170322
